FAERS Safety Report 10900039 (Version 1)
Quarter: 2015Q1

REPORT INFORMATION
  Report Type: Spontaneous
  Country: US (occurrence: US)
  Receive Date: 20150310
  Receipt Date: 20150310
  Transmission Date: 20150721
  Serious: No
  Sender: FDA-Public Use
  Company Number: US-TEVA-527454USA

PATIENT
  Sex: Female

DRUGS (1)
  1. CAPECITABINE. [Suspect]
     Active Substance: CAPECITABINE
     Dosage: 1500 MILLIGRAM DAILY;

REACTIONS (5)
  - Skin exfoliation [Unknown]
  - Vaginal mucosal blistering [Unknown]
  - Blister [Unknown]
  - Joint swelling [Unknown]
  - Diarrhoea [Unknown]
